FAERS Safety Report 11874601 (Version 2)
Quarter: 2016Q1

REPORT INFORMATION
  Report Type: Spontaneous
  Country: FR (occurrence: FR)
  Receive Date: 20151229
  Receipt Date: 20160210
  Transmission Date: 20160526
  Serious: Yes (Other)
  Sender: FDA-Public Use
  Company Number: PHHY2015FR168868

PATIENT
  Age: 35 Year
  Sex: Female

DRUGS (2)
  1. GILENYA [Suspect]
     Active Substance: FINGOLIMOD HYDROCHLORIDE
     Indication: RELAPSING-REMITTING MULTIPLE SCLEROSIS
     Dosage: 0.5 MG, QD
     Route: 048
     Dates: start: 201406
  2. GILENYA [Suspect]
     Active Substance: FINGOLIMOD HYDROCHLORIDE
     Dosage: 0.5 MG, (5 DAYS OUT OF 7)
     Route: 048

REACTIONS (5)
  - Multiple sclerosis relapse [Unknown]
  - Transaminases increased [Unknown]
  - Prescribed underdose [Recovered/Resolved]
  - Hepatocellular injury [Recovered/Resolved]
  - Lymphopenia [Recovered/Resolved]
